FAERS Safety Report 4804738-3 (Version None)
Quarter: 2005Q4

REPORT INFORMATION
  Report Type: 
  Country: None (occurrence: None)
  Receive Date: 20051014
  Receipt Date: 20051005
  Transmission Date: 20060501
  Serious: Yes (Other)
  Sender: FDA-Public Use
  Company Number: HQWYE038802FEB05

PATIENT
  Age: 59 Year
  Sex: Male

DRUGS (8)
  1. ROFERON, CONTROL FOR TEMSIROLIMUS (INTERFERON ALFA, CONTROL FOR TEMSIR [Suspect]
     Indication: METASTATIC RENAL CELL CARCINOMA
     Dosage: 9 MU 3X PER WEEK SC
     Route: 058
     Dates: start: 20040713, end: 20050122
  2. COLACE (DOCUSATE SODIUM) [Concomitant]
  3. TRIAZID (HYDROCHLOROTHIAZIDE/TRIAMTERENE) [Concomitant]
  4. MAXERAN (METOCLOPRAMIDE HYDROCHLORIDE) [Concomitant]
  5. IBUPROFEN [Concomitant]
  6. BLISTEX (CAMPHOR/PHENOL) [Concomitant]
  7. TRIAMCINOLONE ACETONIDE (TRIANCINOLONE ACETONIDE) [Concomitant]
  8. HYDROCORTISONE ACETATE (HYDROCORTISONE ACETATE) [Concomitant]

REACTIONS (8)
  - BRONCHIECTASIS [None]
  - CHILLS [None]
  - EMPHYSEMA [None]
  - HEADACHE [None]
  - MALAISE [None]
  - PNEUMONIA [None]
  - PNEUMONITIS [None]
  - PULMONARY FIBROSIS [None]
